FAERS Safety Report 19565835 (Version 1)
Quarter: 2021Q3

REPORT INFORMATION
  Report Type: Spontaneous
  Country: US (occurrence: US)
  Receive Date: 20210715
  Receipt Date: 20210715
  Transmission Date: 20211014
  Serious: Yes (Other)
  Sender: FDA-Public Use
  Company Number: US-SK LIFE SCIENCE, INC-SKPVG-2021-000823

PATIENT

DRUGS (1)
  1. XCOPRI [Suspect]
     Active Substance: CENOBAMATE
     Indication: LENNOX-GASTAUT SYNDROME
     Dosage: 12.5 MILLIGRAM
     Route: 065

REACTIONS (3)
  - Bradycardia [Unknown]
  - Condition aggravated [Unknown]
  - Product use in unapproved indication [Unknown]
